FAERS Safety Report 6214994-5 (Version None)
Quarter: 2009Q2

REPORT INFORMATION
  Report Type: 
  Country: None (occurrence: None)
  Receive Date: 20090604
  Receipt Date: 20080529
  Transmission Date: 20091009
  Serious: Yes (Other)
  Sender: FDA-Public Use
  Company Number: US-ASTRAZENECA-2008UW10895

PATIENT
  Age: 82 Year
  Sex: Female

DRUGS (6)
  1. PRILOSEC [Suspect]
     Route: 048
  2. WARFARIN [Interacting]
     Route: 065
  3. PREDNISONE [Concomitant]
  4. DIGOXIN [Concomitant]
  5. AMIODARONE HCL [Concomitant]
  6. ATIVAN [Concomitant]

REACTIONS (2)
  - DRUG INTERACTION [None]
  - INTERNATIONAL NORMALISED RATIO INCREASED [None]
